FAERS Safety Report 24676062 (Version 2)
Quarter: 2024Q4

REPORT INFORMATION
  Report Type: Spontaneous
  Country: CN (occurrence: CN)
  Receive Date: 20241128
  Receipt Date: 20241203
  Transmission Date: 20250115
  Serious: Yes (Other)
  Sender: PFIZER
  Company Number: CN-PFIZER INC-PV202400153502

PATIENT
  Age: 49 Year
  Sex: Male
  Weight: 73 kg

DRUGS (8)
  1. CYTARABINE [Suspect]
     Active Substance: CYTARABINE
     Indication: Acute lymphocytic leukaemia
     Dosage: 1.5 G, 2X/DAY
     Route: 041
     Dates: start: 20241021, end: 20241023
  2. METHOTREXATE SODIUM [Suspect]
     Active Substance: METHOTREXATE SODIUM
     Indication: Acute lymphocytic leukaemia
     Dosage: 1500 MG, 1X/DAY
     Route: 041
     Dates: start: 20241020, end: 20241020
  3. FUROSEMIDE [Suspect]
     Active Substance: FUROSEMIDE
     Indication: Diuretic therapy
     Dosage: 20 MG, 1X/DAY
     Route: 042
     Dates: start: 20241020, end: 20241024
  4. SULFAMETHOXAZOLE [Suspect]
     Active Substance: SULFAMETHOXAZOLE
     Indication: Pneumonia
     Dosage: 0.96 G, 4X/DAY
     Route: 048
     Dates: start: 20240912, end: 20241028
  5. PHOSPHOLIPID [Concomitant]
     Active Substance: PHOSPHOLIPID
     Indication: Therapeutic procedure
     Dosage: 10 UL, 1X/DAY
     Route: 042
     Dates: start: 20241020, end: 20241028
  6. LEUCOVORIN CALCIUM [Concomitant]
     Active Substance: LEUCOVORIN CALCIUM
     Indication: Drug detoxification
     Dosage: 50 MG, 4X/DAY
     Route: 030
     Dates: start: 20241021, end: 20241022
  7. ESOMEPRAZOLE SODIUM [Concomitant]
     Active Substance: ESOMEPRAZOLE SODIUM
     Indication: Prophylaxis
     Dosage: 20 MG, 2X/DAY
     Route: 041
     Dates: start: 20241020, end: 20241024
  8. ONDANSETRON HYDROCHLORIDE [Concomitant]
     Active Substance: ONDANSETRON HYDROCHLORIDE
     Indication: Antiemetic supportive care
     Dosage: 8 MG, 1X/DAY
     Route: 042
     Dates: start: 20241020, end: 20241022

REACTIONS (1)
  - Blood creatinine increased [Recovering/Resolving]

NARRATIVE: CASE EVENT DATE: 20241021
